FAERS Safety Report 9099698 (Version 4)
Quarter: 2013Q4

REPORT INFORMATION
  Report Type: Report from Study
  Country: FR (occurrence: FR)
  Receive Date: 20130214
  Receipt Date: 20131224
  Transmission Date: 20140711
  Serious: Yes (Hospitalization)
  Sender: FDA-Public Use
  Company Number: FR-ROCHE-1187176

PATIENT
  Age: 68 Year
  Sex: Female
  Weight: 70 kg

DRUGS (19)
  1. TRASTUZUMAB EMTANSINE [Suspect]
     Indication: BREAST CANCER METASTATIC
     Dosage: LOADING DOSE: 3.6 MG/KG
     Route: 042
     Dates: start: 20120120
  2. TRASTUZUMAB EMTANSINE [Suspect]
     Dosage: LAST DOSE PRIOR TO EVENT TAKEN: 260 MG ON 11/JAN/2013
     Route: 042
  3. OXYNORM [Concomitant]
     Indication: BONE PAIN
     Route: 065
     Dates: start: 20111219
  4. OXYCONTIN [Concomitant]
     Indication: BONE PAIN
     Route: 065
     Dates: start: 20111219
  5. LEVOTHYROX [Concomitant]
     Indication: HYPOTHYROIDISM
     Route: 065
     Dates: start: 1996
  6. TOBREX [Concomitant]
     Route: 065
     Dates: start: 20101213
  7. ARTELAC [Concomitant]
     Route: 065
     Dates: start: 20101213
  8. LOVENOX [Concomitant]
     Route: 065
     Dates: start: 20120131
  9. DOLIPRANE [Concomitant]
     Indication: BONE PAIN
     Route: 065
     Dates: start: 20120121
  10. UVEDOSE [Concomitant]
     Route: 065
     Dates: start: 20120126
  11. NEURONTIN (UNITED STATES) [Concomitant]
     Indication: NEURALGIA
     Route: 065
     Dates: start: 20120127
  12. DUROGESIC [Concomitant]
     Indication: BONE PAIN
     Route: 065
     Dates: start: 20120131
  13. PROFENID [Concomitant]
     Indication: INFLAMMATION
     Route: 065
     Dates: start: 20120201
  14. ZOMETA [Concomitant]
     Route: 065
     Dates: start: 20120201
  15. CACIT D3 [Concomitant]
     Route: 065
     Dates: start: 20120209
  16. ZOPHREN [Concomitant]
     Indication: PROPHYLAXIS OF NAUSEA AND VOMITING
     Route: 065
     Dates: start: 20120120
  17. RIVOTRIL [Concomitant]
     Indication: BACK PAIN
     Route: 065
     Dates: start: 20120423
  18. SOLU-MEDROL [Concomitant]
     Route: 065
     Dates: start: 20120120
  19. PERTUZUMAB [Suspect]
     Indication: BREAST CANCER METASTATIC
     Dosage: LAST DOSE PRIOR TO EVENT: 11/JAN/2013
     Route: 042
     Dates: start: 20120120

REACTIONS (1)
  - Cholecystitis [Recovered/Resolved]
